FAERS Safety Report 6570741-9 (Version None)
Quarter: 2010Q1

REPORT INFORMATION
  Report Type: 
  Country: None (occurrence: None)
  Receive Date: 20100204
  Receipt Date: 20100126
  Transmission Date: 20100710
  Serious: Yes (Hospitalization)
  Sender: FDA-Public Use
  Company Number: B0631107A

PATIENT
  Age: 46 Year
  Sex: Female

DRUGS (4)
  1. ZIDOVUDINE [Suspect]
     Dates: start: 20040708
  2. LAMIVUDINE [Suspect]
     Dates: start: 20040708
  3. EFAVIRENZ [Suspect]
     Dates: start: 20040508
  4. ITRACONAZOLE [Concomitant]
     Dosage: 400MG PER DAY

REACTIONS (6)
  - ARTHRALGIA [None]
  - IMMUNE RECONSTITUTION SYNDROME [None]
  - MUCOUS MEMBRANE DISORDER [None]
  - SKIN LESION [None]
  - SKIN ULCER [None]
  - SPOROTRICHOSIS [None]
